FAERS Safety Report 9485049 (Version 1)
Quarter: 2013Q3

REPORT INFORMATION
  Report Type: Spontaneous
  Country: US (occurrence: US)
  Receive Date: 20130828
  Receipt Date: 20130828
  Transmission Date: 20140515
  Serious: No
  Sender: FDA-Public Use
  Company Number: US-ABBOTT-13P-163-1100081-00

PATIENT
  Sex: Male

DRUGS (3)
  1. ANDROGEL [Suspect]
     Indication: BLOOD TESTOSTERONE DECREASED
     Dosage: 1 PUMP DAILY
     Dates: start: 201301, end: 2013
  2. ANDROGEL [Suspect]
     Dosage: 2 PUMPS DAILY
     Dates: start: 2013, end: 2013
  3. ANDROGEL [Suspect]
     Dosage: 3 PUMPS DAILY
     Dates: start: 2013

REACTIONS (4)
  - Arthralgia [Not Recovered/Not Resolved]
  - Pain in extremity [Not Recovered/Not Resolved]
  - Rash [Not Recovered/Not Resolved]
  - Blood testosterone decreased [Unknown]
